FAERS Safety Report 5392048-8 (Version None)
Quarter: 2007Q3

REPORT INFORMATION
  Report Type: 
  Country: None (occurrence: None)
  Receive Date: 20070718
  Receipt Date: 20070718
  Transmission Date: 20080115
  Serious: Yes (Death)
  Sender: FDA-Public Use
  Company Number: None

PATIENT
  Sex: Male

DRUGS (8)
  1. HYDROCODONE BITARTRATE + ACETAMINOPHEN [Suspect]
     Indication: ARTHRALGIA
     Dosage: 1/2 TAB Q6H P.R.N. P.O.
     Route: 048
     Dates: start: 20031202, end: 20040113
  2. PLAVIX [Concomitant]
  3. PROTONIX [Concomitant]
  4. FUROSEMIDE [Concomitant]
  5. AMARYL [Concomitant]
  6. LANTUS [Concomitant]
  7. ZOCOR [Concomitant]
  8. KLOR-CON [Concomitant]

REACTIONS (2)
  - ABDOMINAL PAIN UPPER [None]
  - DYSPNOEA [None]
